FAERS Safety Report 9393103 (Version 2)
Quarter: 2013Q3

REPORT INFORMATION
  Report Type: Spontaneous
  Country: JP (occurrence: JP)
  Receive Date: 20130710
  Receipt Date: 20130723
  Transmission Date: 20140515
  Serious: Yes (Other)
  Sender: FDA-Public Use
  Company Number: JP-PFIZER INC-2013201315

PATIENT
  Age: 81 Year
  Sex: Male

DRUGS (1)
  1. ESTRACYT [Suspect]
     Indication: PROSTATE CANCER
     Dosage: 3144 MG, 1X/DAY
     Route: 048
     Dates: start: 20121019, end: 20130501

REACTIONS (3)
  - Platelet count decreased [Unknown]
  - Malaise [Unknown]
  - Decreased appetite [Unknown]
